FAERS Safety Report 5152669-4 (Version None)
Quarter: 2006Q4

REPORT INFORMATION
  Report Type: 
  Country: None (occurrence: None)
  Receive Date: 20061109
  Receipt Date: 20061020
  Transmission Date: 20070319
  Serious: Yes (Hospitalization)
  Sender: FDA-Public Use
  Company Number: THYM-11111

PATIENT
  Age: 60 Year
  Weight: 66.3612 kg

DRUGS (2)
  1. THYMOGLOBULIN [Suspect]
     Indication: RENAL TRANSPLANT
     Dosage: 100 MG QD; IV
     Route: 042
     Dates: start: 20060218, end: 20060220
  2. VALCYTE [Concomitant]

REACTIONS (4)
  - BLOOD POTASSIUM INCREASED [None]
  - CYTOMEGALOVIRUS INFECTION [None]
  - DIALYSIS [None]
  - DIARRHOEA [None]
